FAERS Safety Report 13510061 (Version 1)
Quarter: 2017Q2

REPORT INFORMATION
  Report Type: Spontaneous
  Country: US (occurrence: US)
  Receive Date: 20170503
  Receipt Date: 20170503
  Transmission Date: 20170830
  Serious: No
  Sender: FDA-Public Use
  Company Number: US-SA-2017SA068267

PATIENT
  Sex: Female

DRUGS (19)
  1. FUROSEMIDE. [Concomitant]
     Active Substance: FUROSEMIDE
  2. ATORVASTATIN [Concomitant]
     Active Substance: ATORVASTATIN
  3. EFFIENT [Concomitant]
     Active Substance: PRASUGREL HYDROCHLORIDE
  4. HYDRALAZINE [Concomitant]
     Active Substance: HYDRALAZINE HYDROCHLORIDE
  5. TRULICITY [Concomitant]
     Active Substance: DULAGLUTIDE
  6. BUPROPION HYDROCHLORIDE. [Concomitant]
     Active Substance: BUPROPION HYDROCHLORIDE
  7. GABAPENTIN. [Concomitant]
     Active Substance: GABAPENTIN
  8. QUETIAPINE. [Concomitant]
     Active Substance: QUETIAPINE
  9. FLUTICASONE. [Concomitant]
     Active Substance: FLUTICASONE
  10. RANITIDINE. [Concomitant]
     Active Substance: RANITIDINE
  11. SERTRALINE [Concomitant]
     Active Substance: SERTRALINE HYDROCHLORIDE
  12. CYCLOBENZAPRINE. [Concomitant]
     Active Substance: CYCLOBENZAPRINE
  13. ALIROCUMAB PREFILLED PEN [Concomitant]
     Active Substance: ALIROCUMAB
     Indication: HYPERLIPIDAEMIA
     Dates: start: 20161224
  14. HYDROCODONE BITARTRATE AND ACETAMINOPHEN [Concomitant]
     Active Substance: ACETAMINOPHEN\HYDROCODONE BITARTRATE
  15. PRALUENT [Suspect]
     Active Substance: ALIROCUMAB
     Indication: HYPERLIPIDAEMIA
     Route: 058
     Dates: start: 20161224
  16. BUTALBITAL [Concomitant]
     Active Substance: BUTALBITAL
  17. GLIPIZIDE. [Concomitant]
     Active Substance: GLIPIZIDE
  18. TERAZOSIN [Concomitant]
     Active Substance: TERAZOSIN\TERAZOSIN HYDROCHLORIDE
  19. ZOLPIDEM [Concomitant]
     Active Substance: ZOLPIDEM\ZOLPIDEM TARTRATE

REACTIONS (1)
  - Influenza like illness [Not Recovered/Not Resolved]
